FAERS Safety Report 14988843 (Version 1)
Quarter: 2018Q2

REPORT INFORMATION
  Report Type: Spontaneous
  Country: US (occurrence: US)
  Receive Date: 20180516
  Receipt Date: 20180516
  Transmission Date: 20180711
  Serious: Yes (Hospitalization)
  Sender: FDA-Public Use
  Company Number: None

PATIENT
  Age: 73 Year
  Sex: Male
  Weight: 145 kg

DRUGS (1)
  1. WARFARIN [Suspect]
     Active Substance: WARFARIN
     Indication: ATRIAL FIBRILLATION
     Dates: start: 20090301

REACTIONS (6)
  - Anaemia [None]
  - International normalised ratio increased [None]
  - Gastrointestinal haemorrhage [None]
  - Acute kidney injury [None]
  - Diverticulum intestinal [None]
  - Urinary tract infection [None]

NARRATIVE: CASE EVENT DATE: 20170927
